FAERS Safety Report 10241092 (Version 2)
Quarter: 2014Q2

REPORT INFORMATION
  Report Type: Spontaneous
  Country: US (occurrence: US)
  Receive Date: 20140617
  Receipt Date: 20140625
  Transmission Date: 20141212
  Serious: Yes (Other)
  Sender: FDA-Public Use
  Company Number: US-UCBSA-2014000527

PATIENT
  Sex: Male
  Weight: 102 kg

DRUGS (2)
  1. KEPPRA [Suspect]
     Indication: CONVULSION
     Dosage: 750 MG, 2X/DAY (BID)
     Dates: start: 201209
  2. NORVASC [Concomitant]
     Dosage: 10 MG, ONCE DAILY (QD)
     Route: 048
     Dates: start: 20140530

REACTIONS (3)
  - HIV infection [Not Recovered/Not Resolved]
  - Essential hypertension [Not Recovered/Not Resolved]
  - Type V hyperlipidaemia [Not Recovered/Not Resolved]
